FAERS Safety Report 4656046-1 (Version None)
Quarter: 2005Q2

REPORT INFORMATION
  Report Type: 
  Country: None (occurrence: None)
  Receive Date: 20050506
  Receipt Date: 20050406
  Transmission Date: 20051028
  Serious: Yes (Hospitalization)
  Sender: FDA-Public Use
  Company Number: 2005054677

PATIENT
  Age: 80 Year
  Sex: Male
  Weight: 78.0187 kg

DRUGS (7)
  1. ARTHRITIS FORMULA BENGAY (MENTHOL, METHYL SALICYLATE) [Suspect]
     Indication: ARTHRITIS
     Dosage: ONCE EVERY FEW DAYS, TOPICAL
     Route: 061
     Dates: start: 20041001
  2. CARVEDILOL [Concomitant]
  3. ENALAPRIL MALEATE [Concomitant]
  4. LEVOTHYROXINE SODIUM [Concomitant]
  5. CLOPIDOGREL BISULFATE [Concomitant]
  6. DIURETICS (DIURETICS) [Concomitant]
  7. IRON (IRON) [Concomitant]

REACTIONS (3)
  - BLOOD GLUCOSE DECREASED [None]
  - LOSS OF CONSCIOUSNESS [None]
  - PRURITUS [None]
